FAERS Safety Report 18559770 (Version 7)
Quarter: 2022Q4

REPORT INFORMATION
  Report Type: Report from Study
  Country: US (occurrence: US)
  Receive Date: 20201130
  Receipt Date: 20221021
  Transmission Date: 20230112
  Serious: Yes (Hospitalization, Other)
  Sender: FDA-Public Use
  Company Number: US-TAKEDA-2020TUS052719

PATIENT
  Sex: Female
  Weight: 73.923 kg

DRUGS (35)
  1. HUMAN IMMUNOGLOBULIN G [Suspect]
     Active Substance: HUMAN IMMUNOGLOBULIN G
     Indication: Immunodeficiency common variable
     Dosage: 10 GRAM, 1/WEEK
     Route: 058
     Dates: start: 20190406
  2. DIPHENHYDRAMINE [Concomitant]
     Active Substance: DIPHENHYDRAMINE
  3. PREDNISONE [Concomitant]
     Active Substance: PREDNISONE
  4. SYMBICORT [Concomitant]
     Active Substance: BUDESONIDE\FORMOTEROL FUMARATE DIHYDRATE
  5. COENZYME Q10 [Concomitant]
     Active Substance: DIETARY SUPPLEMENT\UBIDECARENONE
  6. GARLIC [Concomitant]
     Active Substance: GARLIC
  7. ALBUTEROL SULFATE [Concomitant]
     Active Substance: ALBUTEROL SULFATE
  8. NASACORT [Concomitant]
     Active Substance: TRIAMCINOLONE ACETONIDE
  9. EPINEPHRINE [Concomitant]
     Active Substance: EPINEPHRINE
  10. ACETAMINOPHEN [Concomitant]
     Active Substance: ACETAMINOPHEN
  11. TRETINOIN [Concomitant]
     Active Substance: TRETINOIN
  12. LASIX [Concomitant]
     Active Substance: FUROSEMIDE
  13. SINGULAIR [Concomitant]
     Active Substance: MONTELUKAST SODIUM
  14. NOVOLOG [Concomitant]
     Active Substance: INSULIN ASPART
  15. PRAVASTATIN SODIUM [Concomitant]
     Active Substance: PRAVASTATIN SODIUM
  16. LANTUS [Concomitant]
     Active Substance: INSULIN GLARGINE
  17. VICTOZA [Concomitant]
     Active Substance: LIRAGLUTIDE
  18. VITAMIN D3 [Concomitant]
     Active Substance: CHOLECALCIFEROL
  19. FLORAJEN3 [Concomitant]
  20. ALLOPURINOL [Concomitant]
     Active Substance: ALLOPURINOL
  21. GLUTATHIONE [Concomitant]
     Active Substance: GLUTATHIONE
  22. MIRALAX [Concomitant]
     Active Substance: POLYETHYLENE GLYCOL 3350
  23. SUDOGEST [Concomitant]
     Active Substance: PSEUDOEPHEDRINE HYDROCHLORIDE
  24. PLAVIX [Concomitant]
     Active Substance: CLOPIDOGREL BISULFATE
  25. ALPHA LIPOIC ACID [Concomitant]
     Active Substance: .ALPHA.-LIPOIC ACID
  26. OXYCODONE AND ACETAMINOPHEN [Concomitant]
     Active Substance: ACETAMINOPHEN\OXYCODONE HYDROCHLORIDE
  27. FOSAMAX [Concomitant]
     Active Substance: ALENDRONATE SODIUM
  28. OXYGEN [Concomitant]
     Active Substance: OXYGEN
  29. LIDOCAINE HYDROCHLORIDE [Concomitant]
     Active Substance: LIDOCAINE HYDROCHLORIDE
  30. VENTOLIN [Concomitant]
     Active Substance: ALBUTEROL SULFATE
  31. ELIQUIS [Concomitant]
     Active Substance: APIXABAN
  32. POTASSIUM [Concomitant]
     Active Substance: POTASSIUM
  33. OMEPRAZOLE [Concomitant]
     Active Substance: OMEPRAZOLE
  34. MUCINEX [Concomitant]
     Active Substance: GUAIFENESIN
  35. ALBUTEROL SULFATE [Concomitant]
     Active Substance: ALBUTEROL SULFATE

REACTIONS (13)
  - Colitis [Unknown]
  - Sepsis [Unknown]
  - Cardiac infection [Unknown]
  - Atrial fibrillation [Unknown]
  - Cardiac failure congestive [Unknown]
  - Pleural effusion [Unknown]
  - Illness [Unknown]
  - Decreased appetite [Unknown]
  - Nausea [Unknown]
  - Arthropod bite [Unknown]
  - Infected bite [Unknown]
  - Swelling [Unknown]
  - Respiratory tract infection [Unknown]
